FAERS Safety Report 21151313 (Version 1)
Quarter: 2022Q3

REPORT INFORMATION
  Report Type: Spontaneous
  Country: US (occurrence: US)
  Receive Date: 20220730
  Receipt Date: 20220730
  Transmission Date: 20221026
  Serious: Yes (Other)
  Sender: FDA-Public Use
  Company Number: US-Shilpa Medicare Limited-SML-US-2022-00856

PATIENT
  Age: 54 Year
  Sex: Male

DRUGS (12)
  1. IMATINIB [Suspect]
     Active Substance: IMATINIB
     Indication: Gastrointestinal stromal tumour
  2. IMATINIB [Suspect]
     Active Substance: IMATINIB
  3. BINIMETINIB [Suspect]
     Active Substance: BINIMETINIB
     Indication: Gastrointestinal stromal tumour
  4. AVAPRITINIB [Suspect]
     Active Substance: AVAPRITINIB
     Indication: Gastrointestinal stromal tumour
  5. RIPRETINIB [Suspect]
     Active Substance: RIPRETINIB
     Indication: Gastrointestinal stromal tumour
  6. RIPRETINIB [Suspect]
     Active Substance: RIPRETINIB
  7. NILOTINIB [Suspect]
     Active Substance: NILOTINIB
     Indication: Gastrointestinal stromal tumour
  8. REGORAFENIB [Suspect]
     Active Substance: REGORAFENIB
     Indication: Gastrointestinal stromal tumour
  9. SUNITINIB [Suspect]
     Active Substance: SUNITINIB
     Indication: Gastrointestinal stromal tumour
  10. PAZOPANIB [Suspect]
     Active Substance: PAZOPANIB
     Indication: Gastrointestinal stromal tumour
  11. CABOZANTINIB [Suspect]
     Active Substance: CABOZANTINIB
     Indication: Gastrointestinal stromal tumour
  12. SIROLIMUS [Suspect]
     Active Substance: SIROLIMUS
     Indication: Gastrointestinal stromal tumour

REACTIONS (5)
  - Multiple-drug resistance [Unknown]
  - Hypersensitivity [Unknown]
  - Disease progression [Unknown]
  - Therapy partial responder [Unknown]
  - Cardiotoxicity [Unknown]
